FAERS Safety Report 12790406 (Version 1)
Quarter: 2016Q3

REPORT INFORMATION
  Report Type: Spontaneous
  Country: US (occurrence: US)
  Receive Date: 20160928
  Receipt Date: 20160928
  Transmission Date: 20161109
  Serious: No
  Sender: FDA-Public Use
  Company Number: US-ASTRAZENECA-2016SF02890

PATIENT
  Sex: Male

DRUGS (1)
  1. FARXIGA [Suspect]
     Active Substance: DAPAGLIFLOZIN PROPANEDIOL
     Indication: INSULIN-REQUIRING TYPE 2 DIABETES MELLITUS
     Route: 048

REACTIONS (4)
  - Glycosylated haemoglobin increased [Unknown]
  - Asthenia [Unknown]
  - Fear [Unknown]
  - Anxiety [Unknown]
